FAERS Safety Report 15788031 (Version 1)
Quarter: 2019Q1

REPORT INFORMATION
  Report Type: Spontaneous
  Country: US (occurrence: US)
  Receive Date: 20190104
  Receipt Date: 20190104
  Transmission Date: 20190417
  Serious: No
  Sender: FDA-Public Use
  Company Number: US-CIPLA LTD.-2018US22947

PATIENT

DRUGS (1)
  1. TESTOSTERONE. [Suspect]
     Active Substance: TESTOSTERONE
     Indication: HYPOGONADISM
     Dosage: 1 ML, EVERY TWO WEEKS
     Route: 030
     Dates: start: 20181115

REACTIONS (3)
  - Injection site pain [Not Recovered/Not Resolved]
  - Product contamination physical [Unknown]
  - Product quality issue [Unknown]

NARRATIVE: CASE EVENT DATE: 20181115
